FAERS Safety Report 25379550 (Version 2)
Quarter: 2025Q2

REPORT INFORMATION
  Report Type: Spontaneous
  Country: US (occurrence: US)
  Receive Date: 20250530
  Receipt Date: 20250530
  Transmission Date: 20250717
  Serious: Yes (Other)
  Sender: GILEAD
  Company Number: US-GILEAD-2025-0715083

PATIENT
  Sex: Male

DRUGS (2)
  1. BIKTARVY [Suspect]
     Active Substance: BICTEGRAVIR SODIUM\EMTRICITABINE\TENOFOVIR ALAFENAMIDE FUMARATE
     Indication: Prophylaxis against HIV infection
     Route: 065
  2. DOXY [DOXYCYCLINE] [Concomitant]
     Indication: Prophylaxis against HIV infection

REACTIONS (4)
  - Exfoliative rash [Unknown]
  - Rash papular [Unknown]
  - Rash pruritic [Unknown]
  - Product use in unapproved indication [Unknown]
